FAERS Safety Report 21963960 (Version 1)
Quarter: 2023Q1

REPORT INFORMATION
  Report Type: Spontaneous
  Country: US (occurrence: None)
  Receive Date: 20230206
  Receipt Date: 20230206
  Transmission Date: 20230418
  Serious: No
  Sender: FDA-Public Use
  Company Number: None

PATIENT
  Age: 70 Year
  Sex: Female
  Weight: 59.01 kg

DRUGS (13)
  1. LENALIDOMIDE [Suspect]
     Active Substance: LENALIDOMIDE
     Indication: Plasma cell myeloma
     Dosage: FREQUENCY : DAILY;?
     Route: 048
  2. BUDESONIDE [Concomitant]
  3. CETIRIZINE [Concomitant]
  4. DECADRON [Concomitant]
  5. FISH OIL [Concomitant]
  6. VITAMIN D [Concomitant]
  7. MULTIVITAMIN [Concomitant]
  8. PANTOPRAZOLE [Concomitant]
  9. VITAMIN C [Concomitant]
  10. SODIUM BICARBONATE [Concomitant]
  11. TRAZODONE [Concomitant]
  12. TYLENOL [Concomitant]
  13. ZINC [Concomitant]

REACTIONS (1)
  - Pneumonia [None]
